FAERS Safety Report 23316726 (Version 3)
Quarter: 2025Q3

REPORT INFORMATION
  Report Type: Spontaneous
  Country: US (occurrence: US)
  Receive Date: 20231219
  Receipt Date: 20250709
  Transmission Date: 20251020
  Serious: No
  Sender: ROCHE
  Company Number: US-ROCHE-3393856

PATIENT
  Age: 47 Year
  Sex: Male
  Weight: 96.62 kg

DRUGS (3)
  1. HEMLIBRA [Suspect]
     Active Substance: EMICIZUMAB-KXWH
     Indication: Factor VIII deficiency
     Dosage: STRENGTH-150 MG/ML
     Route: 058
     Dates: start: 201801
  2. HEMLIBRA [Suspect]
     Active Substance: EMICIZUMAB-KXWH
     Dosage: STRENGTH-150 MG/ML, 300MG/2ML
     Route: 058
     Dates: start: 201801
  3. HEMLIBRA [Suspect]
     Active Substance: EMICIZUMAB-KXWH
     Dosage: STRENGTH-150 MG/ML, 300MG/2ML
     Route: 058
     Dates: start: 201801

REACTIONS (12)
  - Haemarthrosis [Unknown]
  - Haemorrhage [Unknown]
  - Joint swelling [Unknown]
  - Joint stiffness [Unknown]
  - Swelling [Unknown]
  - Musculoskeletal stiffness [Unknown]
  - Haemorrhage [Unknown]
  - Mouth haemorrhage [Unknown]
  - Blood urine present [Unknown]
  - Off label use [Unknown]
  - Haemarthrosis [Unknown]
  - Haemorrhage [Unknown]

NARRATIVE: CASE EVENT DATE: 20230901
